FAERS Safety Report 10005805 (Version 3)
Quarter: 2014Q2

REPORT INFORMATION
  Report Type: Report from Study
  Country: CA (occurrence: CA)
  Receive Date: 20140313
  Receipt Date: 20140416
  Transmission Date: 20141212
  Serious: Yes (Other)
  Sender: FDA-Public Use
  Company Number: CA-BRISTOL-MYERS SQUIBB COMPANY-19524560

PATIENT
  Age: 78 Year
  Sex: Female

DRUGS (2)
  1. SPRYCEL [Suspect]
     Indication: ACUTE LYMPHOCYTIC LEUKAEMIA
     Dosage: ONGOING
     Route: 048
     Dates: start: 20120905
  2. GLEEVEC [Suspect]

REACTIONS (10)
  - Yellow skin [Recovering/Resolving]
  - Ocular icterus [Recovering/Resolving]
  - Fall [Unknown]
  - Periorbital contusion [Unknown]
  - Mass [Unknown]
  - Head injury [Unknown]
  - CSF test abnormal [Recovering/Resolving]
  - Nausea [Recovering/Resolving]
  - Fatigue [Recovering/Resolving]
  - Bone pain [Recovering/Resolving]
